FAERS Safety Report 12697468 (Version 1)
Quarter: 2016Q3

REPORT INFORMATION
  Report Type: Spontaneous
  Country: US (occurrence: None)
  Receive Date: 20160829
  Receipt Date: 20160829
  Transmission Date: 20161109
  Serious: Yes (Life-Threatening, Disabling, Other)
  Sender: FDA-Public Use
  Company Number: None

PATIENT
  Age: 58 Year
  Sex: Male
  Weight: 81.65 kg

DRUGS (5)
  1. MORAINE [Concomitant]
  2. PROPRANANOL [Concomitant]
     Active Substance: PROPRANOLOL HYDROCHLORIDE
  3. LYRICA [Suspect]
     Active Substance: PREGABALIN
     Indication: NEURALGIA
     Route: 048
  4. AMLODIPINE [Concomitant]
     Active Substance: AMLODIPINE BESYLATE
  5. BACLOFEN. [Concomitant]
     Active Substance: BACLOFEN

REACTIONS (5)
  - Homicidal ideation [None]
  - Withdrawal syndrome [None]
  - Autonomic neuropathy [None]
  - Suicidal ideation [None]
  - Sleep paralysis [None]

NARRATIVE: CASE EVENT DATE: 20160428
